FAERS Safety Report 9210885 (Version 1)
Quarter: 2013Q2

REPORT INFORMATION
  Report Type: Spontaneous
  Country: US (occurrence: US)
  Receive Date: 20130404
  Receipt Date: 20130404
  Transmission Date: 20140414
  Serious: Yes (Other)
  Sender: FDA-Public Use
  Company Number: CHPA2013US005689

PATIENT
  Age: 70 Year
  Sex: Female

DRUGS (2)
  1. EXCEDRIN MIGRAINE [Suspect]
     Indication: MIGRAINE
     Dosage: 1 OR 2 DF, PRN
     Route: 048
     Dates: start: 1998
  2. EXCEDRIN MIGRAINE [Suspect]
     Indication: PAIN

REACTIONS (8)
  - Corneal dystrophy [Recovered/Resolved]
  - Pulmonary mass [Not Recovered/Not Resolved]
  - Osteoarthritis [Recovered/Resolved]
  - Oxygen saturation decreased [Recovered/Resolved]
  - Wheelchair user [Not Recovered/Not Resolved]
  - Hypoventilation [Not Recovered/Not Resolved]
  - Off label use [Unknown]
  - Underdose [Unknown]
